FAERS Safety Report 7702437-1 (Version None)
Quarter: 2011Q3

REPORT INFORMATION
  Report Type: 
  Country: None (occurrence: None)
  Receive Date: 20110822
  Receipt Date: 20110816
  Transmission Date: 20111222
  Serious: Yes (Hospitalization)
  Sender: FDA-Public Use
  Company Number: FR-BRISTOL-MYERS SQUIBB COMPANY-15855760

PATIENT
  Age: 50 Year
  Sex: Male
  Weight: 60 kg

DRUGS (7)
  1. NEBIVOLOL HCL [Concomitant]
     Indication: CARDIAC FAILURE
     Dosage: HALF A DOSE.
     Route: 048
  2. RAMIPRIL [Concomitant]
     Dosage: HALF A DOSE IN THE EVENING.
     Route: 048
  3. ABILIFY [Suspect]
     Indication: AFFECTIVE DISORDER
     Route: 048
     Dates: start: 20110329, end: 20110520
  4. ABILIFY [Suspect]
     Indication: BIPOLAR DISORDER
     Route: 048
     Dates: start: 20110329, end: 20110520
  5. ABILIFY [Suspect]
     Indication: MAJOR DEPRESSION
     Route: 048
     Dates: start: 20110329, end: 20110520
  6. XANAX [Suspect]
     Indication: ANXIETY
     Dosage: 4 TABLETS.
     Route: 048
     Dates: start: 20110329, end: 20110520
  7. FUROSEMIDE [Concomitant]
     Route: 048

REACTIONS (2)
  - HEPATIC FAILURE [None]
  - HEPATITIS ACUTE [None]
